FAERS Safety Report 7286639-7 (Version None)
Quarter: 2011Q1

REPORT INFORMATION
  Report Type: 
  Country: None (occurrence: None)
  Receive Date: 20110210
  Receipt Date: 20110201
  Transmission Date: 20110831
  Serious: Yes (Death, Life-Threatening)
  Sender: FDA-Public Use
  Company Number: GB-BAXTER-2011BH002775

PATIENT
  Age: 39 Year
  Sex: Male

DRUGS (4)
  1. ETOPOSIDE [Suspect]
     Indication: TERATOMA OF TESTIS
     Route: 042
  2. HEPARIN [Suspect]
     Indication: HAEMODIALYSIS
     Route: 065
  3. CARBOPLATIN [Suspect]
     Indication: TERATOMA OF TESTIS
     Route: 042
  4. HOLOXAN BAXTER [Suspect]
     Indication: TERATOMA OF TESTIS
     Route: 042

REACTIONS (3)
  - HAEMORRHAGE INTRACRANIAL [None]
  - RENAL TUBULAR DISORDER [None]
  - THROMBOCYTOPENIA [None]
